FAERS Safety Report 5604630-0 (Version None)
Quarter: 2008Q1

REPORT INFORMATION
  Report Type: 
  Country: None (occurrence: None)
  Receive Date: 20080124
  Receipt Date: 20080124
  Transmission Date: 20080703
  Serious: No
  Sender: FDA-Public Use
  Company Number: None

PATIENT
  Age: 55 Year
  Sex: Female
  Weight: 112.0385 kg

DRUGS (1)
  1. CYMBALTA [Suspect]
     Indication: AFFECTIVE DISORDER
     Dosage: 10MG DAILY PO
     Route: 048

REACTIONS (3)
  - APHTHOUS STOMATITIS [None]
  - LIP ULCERATION [None]
  - TONGUE ULCERATION [None]
